FAERS Safety Report 7133283-8 (Version None)
Quarter: 2010Q4

REPORT INFORMATION
  Report Type: 
  Country: None (occurrence: None)
  Receive Date: 20101202
  Receipt Date: 20101129
  Transmission Date: 20110411
  Serious: Yes (Hospitalization)
  Sender: FDA-Public Use
  Company Number: US-CEPHALON-2010006190

PATIENT
  Sex: Female

DRUGS (11)
  1. FENTORA [Suspect]
     Indication: BRAIN NEOPLASM
     Route: 002
     Dates: end: 20101124
  2. FENTORA [Suspect]
     Indication: COMPLEX REGIONAL PAIN SYNDROME
     Route: 002
     Dates: start: 20101128
  3. DURAGESIC-100 [Concomitant]
     Route: 062
     Dates: start: 20010101
  4. CORTEF [Concomitant]
     Dates: start: 20010101
  5. SYNTHROID [Concomitant]
     Dates: start: 20010101
  6. DDAVP [Concomitant]
     Dates: start: 20010101
  7. ORTHO TRI-CYCLEN [Concomitant]
     Dates: start: 20100101
  8. NEXIUM [Concomitant]
     Dates: start: 20010101
  9. BELLADONNA [Concomitant]
     Dates: start: 20080101
  10. MOTILIUM [Concomitant]
     Dates: start: 20090101
  11. SALAGEN [Concomitant]
     Dates: start: 20080101

REACTIONS (4)
  - CONVULSION [None]
  - DEAFNESS [None]
  - DRUG PRESCRIBING ERROR [None]
  - HEADACHE [None]
